FAERS Safety Report 22347564 (Version 5)
Quarter: 2023Q4

REPORT INFORMATION
  Report Type: Spontaneous
  Country: US (occurrence: US)
  Receive Date: 20230522
  Receipt Date: 20231107
  Transmission Date: 20240110
  Serious: Yes (Hospitalization, Other)
  Sender: FDA-Public Use
  Company Number: US-ABBVIE-5173879

PATIENT
  Age: 66 Year
  Sex: Male
  Weight: 86 kg

DRUGS (3)
  1. HUMIRA [Suspect]
     Active Substance: ADALIMUMAB
     Indication: Colitis ulcerative
     Dosage: CITRATE FREE?FORM STRENGTH- 40 MG
     Route: 058
     Dates: start: 20220627
  2. HUMIRA [Suspect]
     Active Substance: ADALIMUMAB
  3. ELIQUIS [Concomitant]
     Active Substance: APIXABAN
     Indication: Product used for unknown indication
     Dates: start: 202306

REACTIONS (3)
  - Implantable defibrillator insertion [Recovering/Resolving]
  - Haematochezia [Not Recovered/Not Resolved]
  - Cardiac disorder [Unknown]

NARRATIVE: CASE EVENT DATE: 20230515
